FAERS Safety Report 6141482-7 (Version None)
Quarter: 2009Q1

REPORT INFORMATION
  Report Type: 
  Country: None (occurrence: None)
  Receive Date: 20090321
  Receipt Date: 20090223
  Transmission Date: 20090719
  Serious: Yes (Hospitalization)
  Sender: FDA-Public Use
  Company Number: 20096469

PATIENT
  Age: 18 Year
  Sex: Female

DRUGS (1)
  1. LIORESAL [Suspect]
     Indication: MUSCLE SPASTICITY
     Dosage: MCG, DAILY; INTRATHECAL
     Route: 039

REACTIONS (7)
  - CATHETER RELATED COMPLICATION [None]
  - CONSCIOUSNESS FLUCTUATING [None]
  - DELIRIUM [None]
  - DRUG WITHDRAWAL SYNDROME [None]
  - HALLUCINATION, VISUAL [None]
  - MUSCLE SPASTICITY [None]
  - SLEEP DISORDER [None]
